FAERS Safety Report 5956069-6 (Version None)
Quarter: 2008Q4

REPORT INFORMATION
  Report Type: 
  Country: None (occurrence: None)
  Receive Date: 20081118
  Receipt Date: 20081110
  Transmission Date: 20090506
  Serious: Yes (Other)
  Sender: FDA-Public Use
  Company Number: BR-JNJFOC-20080804666

PATIENT
  Sex: Female
  Weight: 43 kg

DRUGS (3)
  1. MICRONOR [Suspect]
     Indication: CONTRACEPTION
     Route: 048
  2. AMYTRIL [Concomitant]
     Indication: DEPRESSION
     Route: 065
  3. BROMAZEPAM [Concomitant]
     Indication: DEPRESSION
     Route: 065

REACTIONS (3)
  - DRUG EXPOSURE DURING PREGNANCY [None]
  - PREGNANCY ON ORAL CONTRACEPTIVE [None]
  - PREMATURE LABOUR [None]
